FAERS Safety Report 13287483 (Version 1)
Quarter: 2017Q1

REPORT INFORMATION
  Report Type: Spontaneous
  Country: CA (occurrence: CA)
  Receive Date: 20170302
  Receipt Date: 20170302
  Transmission Date: 20170428
  Serious: Yes (Other)
  Sender: FDA-Public Use
  Company Number: CA-TEVA-745227ACC

PATIENT
  Age: 68 Year
  Sex: Female

DRUGS (1)
  1. TEVA-SIMVASTATIN [Suspect]
     Active Substance: SIMVASTATIN
     Indication: BLOOD CHOLESTEROL
     Dosage: 20 MILLIGRAM DAILY;
     Route: 048

REACTIONS (4)
  - Dizziness [Unknown]
  - Nausea [Unknown]
  - Visual impairment [Unknown]
  - Headache [Unknown]
